FAERS Safety Report 6247111-6 (Version None)
Quarter: 2009Q2

REPORT INFORMATION
  Report Type: 
  Country: None (occurrence: None)
  Receive Date: 20090626
  Receipt Date: 20090623
  Transmission Date: 20091009
  Serious: Yes (Death, Hospitalization)
  Sender: FDA-Public Use
  Company Number: PHEH2009US06599

PATIENT
  Sex: Female

DRUGS (1)
  1. SANDOSTATIN LAR [Suspect]
     Indication: CARCINOID TUMOUR
     Dosage: 60 MG, QMO
     Dates: end: 20090201

REACTIONS (4)
  - ASTHENIA [None]
  - DEATH [None]
  - DEHYDRATION [None]
  - NEOPLASM RECURRENCE [None]
